FAERS Safety Report 6450572-0 (Version None)
Quarter: 2009Q4

REPORT INFORMATION
  Report Type: 
  Country: None (occurrence: None)
  Receive Date: 20091123
  Receipt Date: 20091118
  Transmission Date: 20100525
  Serious: Yes (Life-Threatening)
  Sender: FDA-Public Use
  Company Number: AU-ASTRAZENECA-2009SE26987

PATIENT
  Age: 71 Year
  Sex: Male

DRUGS (3)
  1. CRESTOR [Suspect]
     Indication: METABOLIC DISORDER
     Route: 048
     Dates: end: 20080205
  2. NEXIUM [Suspect]
     Indication: OESOPHAGEAL DISORDER
     Route: 048
  3. CARTIA XT [Suspect]
     Indication: PROPHYLAXIS
     Route: 048

REACTIONS (1)
  - PARALYSIS [None]
